FAERS Safety Report 10103227 (Version 1)
Quarter: 2014Q2

REPORT INFORMATION
  Report Type: Spontaneous
  Country: US (occurrence: US)
  Receive Date: 20140424
  Receipt Date: 20140424
  Transmission Date: 20141212
  Serious: No
  Sender: FDA-Public Use
  Company Number: US-BRISTOL-MYERS SQUIBB COMPANY-20196788

PATIENT
  Age: 82 Year
  Sex: Female
  Weight: 70.29 kg

DRUGS (6)
  1. ELIQUIS [Suspect]
     Dosage: HALF AND TAKING HALF IN MORN AND HALF IN EVE
     Dates: start: 20140121
  2. CARVEDILOL [Concomitant]
     Dosage: RED TO 12.5 MG 2/D
  3. OMEPRAZOLE [Concomitant]
  4. AMIODARONE [Concomitant]
  5. NITROSTAT [Concomitant]
     Indication: CHEST PAIN
  6. HYDROCODONE + ACETAMINOPHEN [Concomitant]
     Indication: PAIN

REACTIONS (4)
  - Dizziness [Unknown]
  - Rash pruritic [Unknown]
  - Hypotension [Unknown]
  - Wrong technique in drug usage process [Unknown]
